FAERS Safety Report 22077314 (Version 1)
Quarter: 2023Q1

REPORT INFORMATION
  Report Type: Report from Study
  Country: AR (occurrence: AR)
  Receive Date: 20230309
  Receipt Date: 20230309
  Transmission Date: 20230418
  Serious: Yes (Death, Hospitalization, Other)
  Sender: FDA-Public Use
  Company Number: AR-BoehringerIngelheim-2023-BI-223744

PATIENT
  Age: 68 Year
  Sex: Female

DRUGS (1)
  1. OFEV [Suspect]
     Active Substance: NINTEDANIB
     Indication: Idiopathic pulmonary fibrosis
     Route: 048
     Dates: start: 20210216, end: 20230301

REACTIONS (4)
  - Idiopathic pulmonary fibrosis [Fatal]
  - Renal failure [Fatal]
  - Blood pressure decreased [Fatal]
  - Weight abnormal [Fatal]

NARRATIVE: CASE EVENT DATE: 20230303
